FAERS Safety Report 7918526-2 (Version None)
Quarter: 2011Q4

REPORT INFORMATION
  Report Type: 
  Country: None (occurrence: None)
  Receive Date: 20111116
  Receipt Date: 20111110
  Transmission Date: 20120403
  Serious: Yes (Life-Threatening, Disabling, Other)
  Sender: FDA-Public Use
  Company Number: AU-PFIZER INC-2011239292

PATIENT
  Age: 39 Year
  Sex: Female
  Weight: 67 kg

DRUGS (4)
  1. ZOLOFT [Suspect]
     Indication: DEPRESSION
  2. ZOLOFT [Suspect]
     Indication: ANXIETY
     Dosage: 50 MG, 1X/DAY
     Route: 048
  3. XANAX [Concomitant]
     Indication: PANIC ATTACK
  4. XANAX [Concomitant]
     Indication: ANXIETY
     Dosage: 0.125MG TO 0.25MG AS NEEDED
     Route: 048

REACTIONS (2)
  - ANXIETY [None]
  - HOMICIDAL IDEATION [None]
